FAERS Safety Report 9206024 (Version 1)
Quarter: 2013Q1

REPORT INFORMATION
  Report Type: Spontaneous
  Country: US (occurrence: None)
  Receive Date: 20120709
  Receipt Date: 20120709
  Transmission Date: 20140127
  Serious: Yes (Other)
  Sender: FDA-Public Use
  Company Number: PHHY2011US41987

PATIENT
  Age: 61 Year
  Sex: Female
  Weight: 79.4 kg

DRUGS (10)
  1. GLEEVEC [Suspect]
     Dosage: 600 MG(DAILY), ORAL
     Route: 048
  2. ATIVAN (LORAZEPAM) [Concomitant]
  3. PAXIL (PAROXETINE HYDROCHLORIDE) [Concomitant]
  4. PREMARIN (ESTROGENS CONJUGATED) [Concomitant]
  5. SYNTHROID (LEVOTHYROXINE SODIUM) [Concomitant]
  6. ACTONEL (RISEDRONATE SODIUM) [Concomitant]
  7. ASACOL (MESALAZINE) MODIFIED-RELEASE TABLET, 400 MG [Concomitant]
  8. ZOFRAN (ONDANSETRON HYDROCHLORIDE) [Concomitant]
  9. PREVACID (LANSOPRAZOLE) [Concomitant]
  10. CHEMOTHERAPEUTICS NOS (NO INGREDIENTS/SUBSTANCES) [Concomitant]

REACTIONS (6)
  - Red blood cell count decreased [None]
  - Nausea [None]
  - Diarrhoea [None]
  - Muscle spasms [None]
  - Eyelid oedema [None]
  - Eye swelling [None]
